FAERS Safety Report 5917855-1 (Version None)
Quarter: 2008Q4

REPORT INFORMATION
  Report Type: 
  Country: None (occurrence: None)
  Receive Date: 20081009
  Receipt Date: 20081002
  Transmission Date: 20090506
  Serious: Yes (Death)
  Sender: FDA-Public Use
  Company Number: 2008JP004732

PATIENT
  Age: 75 Year
  Sex: Female

DRUGS (5)
  1. PROGRAF [Suspect]
     Indication: RHEUMATOID ARTHRITIS
     Dosage: 1 MG, /D, ORAL; 1.5 MG, /D, ORAL
     Route: 048
     Dates: start: 20080126, end: 20080222
  2. PROGRAF [Suspect]
     Indication: RHEUMATOID ARTHRITIS
     Dosage: 1 MG, /D, ORAL; 1.5 MG, /D, ORAL
     Route: 048
     Dates: start: 20080223
  3. RHEUMATREX [Suspect]
     Dosage: 7.5 MG, WEEKLY, ORAL
     Route: 048
     Dates: start: 20080126
  4. PREDONINE (PREDNISOLONE) [Concomitant]
  5. FOSAMAC (ALENDRONATE SODIUM) [Concomitant]

REACTIONS (4)
  - BLOOD UREA DECREASED [None]
  - CHOKING SENSATION [None]
  - PNEUMOCYSTIS JIROVECI PNEUMONIA [None]
  - WHITE BLOOD CELL COUNT DECREASED [None]
